FAERS Safety Report 24161275 (Version 1)
Quarter: 2024Q3

REPORT INFORMATION
  Report Type: Spontaneous
  Country: DE (occurrence: DE)
  Receive Date: 20240801
  Receipt Date: 20240801
  Transmission Date: 20241017
  Serious: Yes (Disabling, Other)
  Sender: RANBAXY
  Company Number: DE-CADRBFARM-2024327911

PATIENT
  Age: 68 Year
  Sex: Male
  Weight: 79 kg

DRUGS (3)
  1. TADALAFIL [Suspect]
     Active Substance: TADALAFIL
     Indication: Dysuria
     Dosage: 5 MILLIGRAM
     Route: 048
     Dates: start: 20231109, end: 20240415
  2. ASPIRIN [Concomitant]
     Active Substance: ASPIRIN
     Indication: Coronary artery disease
     Dosage: 100 MILLIGRAM
     Route: 065
  3. RAMIPRIL [Concomitant]
     Active Substance: RAMIPRIL
     Indication: Coronary artery disease
     Dosage: 2.5 MILLIGRAM
     Route: 065

REACTIONS (2)
  - Deafness [Recovered/Resolved with Sequelae]
  - Haematotympanum [Recovered/Resolved with Sequelae]

NARRATIVE: CASE EVENT DATE: 20240412
